FAERS Safety Report 5744922-8 (Version None)
Quarter: 2008Q2

REPORT INFORMATION
  Report Type: 
  Country: None (occurrence: None)
  Receive Date: 20080520
  Receipt Date: 20080511
  Transmission Date: 20081010
  Serious: Yes (Death, Hospitalization)
  Sender: FDA-Public Use
  Company Number: DE-AMGEN-UK265519

PATIENT
  Sex: Female
  Weight: 48.5 kg

DRUGS (10)
  1. MIMPARA [Suspect]
     Indication: HYPERPARATHYROIDISM SECONDARY
     Route: 048
     Dates: start: 20050124
  2. PHENPROCOUMON [Suspect]
     Dates: start: 20021004
  3. METHIMAZOLE [Concomitant]
     Dates: start: 20000707
  4. FENISTIL [Concomitant]
     Dates: start: 20010723
  5. PANTOPRAZOLE SODIUM [Concomitant]
     Dates: start: 20030813
  6. CIPROFLOXACIN HCL [Concomitant]
     Dates: start: 20050721
  7. THEOPHYLLINE [Concomitant]
     Dates: start: 20050701
  8. METOPROLOL TARTRATE [Concomitant]
     Dates: start: 20050722
  9. RAMIPRIL [Concomitant]
     Dates: start: 20050926
  10. VITAMINS [Concomitant]
     Dates: start: 19980101

REACTIONS (2)
  - BRONCHITIS [None]
  - CEREBRAL HAEMORRHAGE [None]
